FAERS Safety Report 8772001 (Version 2)
Quarter: 2012Q4

REPORT INFORMATION
  Report Type: Report from Study
  Country: JP (occurrence: JP)
  Receive Date: 20120905
  Receipt Date: 20121210
  Transmission Date: 20130627
  Serious: Yes (Death, Hospitalization, Other)
  Sender: FDA-Public Use
  Company Number: PHHY2012JP076442

PATIENT
  Sex: Female
  Weight: 42 kg

DRUGS (11)
  1. AFINITOR [Suspect]
     Indication: METASTATIC RENAL CELL CARCINOMA
     Dosage: 5 mg, daily
     Route: 048
     Dates: start: 20110314, end: 20110329
  2. SUNITINIB MALATE [Concomitant]
     Indication: METASTATIC RENAL CELL CARCINOMA
     Dosage: 50 mg, UNK
     Route: 048
     Dates: start: 20101202, end: 20110228
  3. HUSCODE [Concomitant]
     Indication: METASTATIC RENAL CELL CARCINOMA
     Dosage: 6 DF, UNK
     Route: 048
     Dates: start: 20110304, end: 20110503
  4. CLEANAL [Concomitant]
     Dosage: 600 mg, UNK
     Route: 048
     Dates: start: 20110304, end: 20110503
  5. GLYCYRON [Concomitant]
     Dosage: 6 DF, UNK
     Route: 048
     Dates: start: 20110315, end: 20110503
  6. GLYCYRON [Concomitant]
     Dosage: 3 DF, UNK
     Route: 048
  7. CODEINE PHOSPHATE HEMIHYDRATE [Concomitant]
     Indication: METASTATIC RENAL CELL CARCINOMA
     Route: 048
     Dates: start: 20110301, end: 20110501
  8. NAIXAN [Concomitant]
     Indication: METASTATIC RENAL CELL CARCINOMA
     Dosage: 100 mg, UNK
     Route: 048
     Dates: start: 20110325, end: 20110502
  9. TAKEPRON [Concomitant]
     Indication: PROPHYLAXIS
     Dosage: 15 mg, UNK
     Route: 048
     Dates: start: 20110325, end: 20110502
  10. AZUNOL [Concomitant]
     Indication: PROPHYLAXIS
     Dates: start: 20110319, end: 20110501
  11. OXYGEN [Concomitant]
     Dates: start: 20110331, end: 20110430

REACTIONS (6)
  - Pneumothorax [Fatal]
  - Pneumonia [Fatal]
  - Haemoglobin decreased [Not Recovered/Not Resolved]
  - C-reactive protein increased [Not Recovered/Not Resolved]
  - White blood cell count increased [Not Recovered/Not Resolved]
  - Aspartate aminotransferase increased [Not Recovered/Not Resolved]
